FAERS Safety Report 25263314 (Version 1)
Quarter: 2025Q2

REPORT INFORMATION
  Report Type: Spontaneous
  Country: CA (occurrence: None)
  Receive Date: 20250501
  Receipt Date: 20250501
  Transmission Date: 20250717
  Serious: Yes (Hospitalization, Disabling)
  Sender: FDA-CTU
  Company Number: None

PATIENT
  Age: 25 Year
  Sex: Male
  Weight: 72 kg

DRUGS (3)
  1. CITALOPRAM [Suspect]
     Active Substance: CITALOPRAM
     Indication: Anxiety
     Dosage: OTHER QUANTITY : 1 TABLET(S);?FREQUENCY : AT BEDTIME;?
     Route: 048
     Dates: start: 20210914, end: 20241023
  2. WELLBUTRIN [Concomitant]
     Active Substance: BUPROPION HYDROCHLORIDE
  3. Magnesium Bisglycinate, [Concomitant]

REACTIONS (10)
  - Sexual dysfunction [None]
  - Emotional disorder [None]
  - Anhedonia [None]
  - Brain fog [None]
  - Memory impairment [None]
  - Disturbance in attention [None]
  - Cognitive disorder [None]
  - Educational problem [None]
  - Visual impairment [None]
  - Suicidal ideation [None]

NARRATIVE: CASE EVENT DATE: 20241023
